FAERS Safety Report 6356687-X (Version None)
Quarter: 2009Q3

REPORT INFORMATION
  Report Type: 
  Country: None (occurrence: None)
  Receive Date: 20090910
  Receipt Date: 20090910
  Transmission Date: 20100115
  Serious: Yes (Hospitalization)
  Sender: FDA-Public Use
  Company Number: None

PATIENT
  Age: 60 Year
  Sex: Female

DRUGS (17)
  1. ISOVUE-370 [Suspect]
     Indication: COMPUTERISED TOMOGRAM
     Dosage: ONE TIME IV BOLUS
     Route: 042
     Dates: start: 20090529, end: 20090529
  2. ASPIRIN [Concomitant]
  3. LIPITOR [Concomitant]
  4. PLAVIX [Concomitant]
  5. FUROSEMIDE [Concomitant]
  6. LISINOPRIL [Concomitant]
  7. METFORMIN [Concomitant]
  8. METOPROLOL [Concomitant]
  9. NIASPAN ER [Concomitant]
  10. POTASSIUM CHLORIDE [Concomitant]
  11. ROPINIROLE [Concomitant]
  12. AVANDIA [Concomitant]
  13. ZETIA [Concomitant]
  14. EFFEXOR XR [Concomitant]
  15. GABAPENTIN [Concomitant]
  16. INSULIN ASPART [Concomitant]
  17. LANTUS [Concomitant]

REACTIONS (4)
  - CHEST DISCOMFORT [None]
  - CONTRAST MEDIA REACTION [None]
  - FLUSHING [None]
  - PAIN [None]
